FAERS Safety Report 25500736 (Version 1)
Quarter: 2025Q3

REPORT INFORMATION
  Report Type: Spontaneous
  Country: CN (occurrence: CN)
  Receive Date: 20250701
  Receipt Date: 20250701
  Transmission Date: 20251020
  Serious: Yes (Hospitalization)
  Sender: PFIZER
  Company Number: CN-PFIZER INC-PV202500077312

PATIENT
  Age: 59 Year
  Sex: Male

DRUGS (4)
  1. TIGECYCLINE [Suspect]
     Active Substance: TIGECYCLINE
     Indication: Klebsiella infection
  2. TIGECYCLINE [Suspect]
     Active Substance: TIGECYCLINE
     Dosage: 0.05 G, 2X/DAY (Q12 H)
  3. POLYMYXIN B [Suspect]
     Active Substance: POLYMYXIN B
     Indication: Klebsiella infection
  4. POLYMYXIN B [Suspect]
     Active Substance: POLYMYXIN B
     Dosage: 500000 IU, 2X/DAY

REACTIONS (1)
  - Drug intolerance [Unknown]
